FAERS Safety Report 8911320 (Version 1)
Quarter: 2012Q4

REPORT INFORMATION
  Report Type: 
  Country: US (occurrence: US)
  Receive Date: 20121116
  Receipt Date: 20121116
  Transmission Date: 20130627
  Serious: No
  Sender: FDA-Public Use
  Company Number: US-GLAXOSMITHKLINE-A0997169A

PATIENT
  Age: 61 Year
  Sex: Female

DRUGS (5)
  1. VOTRIENT [Suspect]
     Indication: RENAL CANCER
     Dosage: 800MG Per day
     Route: 048
     Dates: start: 20120920
  2. XANAX [Concomitant]
  3. CELEXA [Concomitant]
  4. METFORMIN [Concomitant]
  5. TENORMIN [Concomitant]

REACTIONS (1)
  - Feeling cold [Not Recovered/Not Resolved]
